FAERS Safety Report 24701142 (Version 1)
Quarter: 2024Q4

REPORT INFORMATION
  Report Type: Spontaneous
  Country: US (occurrence: None)
  Receive Date: 20241205
  Receipt Date: 20241205
  Transmission Date: 20250115
  Serious: Yes (Death, Hospitalization)
  Sender: Public
  Company Number: None

PATIENT
  Age: 63 Year
  Sex: Female
  Weight: 40.5 kg

DRUGS (7)
  1. FLUOROURACIL [Suspect]
     Active Substance: FLUOROURACIL
     Dates: end: 20241128
  2. LEUCOVORIN CALCIUM [Suspect]
     Active Substance: LEUCOVORIN CALCIUM
     Dates: end: 20241126
  3. NIVOLUMAB [Suspect]
     Active Substance: NIVOLUMAB
     Dates: end: 20241126
  4. ELOXATIN [Suspect]
     Active Substance: OXALIPLATIN
     Dates: end: 20241126
  5. Docusate-Senna [Concomitant]
  6. FERROUS SULFATE [Concomitant]
     Active Substance: FERROUS SULFATE
  7. Pntoprazole [Concomitant]

REACTIONS (7)
  - Right ventricular failure [None]
  - Acute respiratory failure [None]
  - Lactic acidosis [None]
  - Cardiogenic shock [None]
  - Peripheral swelling [None]
  - Metastatic gastric cancer [None]
  - Cardiac arrest [None]

NARRATIVE: CASE EVENT DATE: 20241128
